FAERS Safety Report 10233940 (Version 5)
Quarter: 2014Q3

REPORT INFORMATION
  Report Type: Spontaneous
  Country: GB (occurrence: GB)
  Receive Date: 20140612
  Receipt Date: 20140912
  Transmission Date: 20150326
  Serious: Yes (Other)
  Sender: FDA-Public Use
  Company Number: GB-BAYER-2014-079051

PATIENT
  Age: 4 Month
  Sex: Male
  Weight: 10 kg

DRUGS (11)
  1. HELIXATE NEXGEN [Suspect]
     Active Substance: ANTIHEMOPHILIC FACTOR, HUMAN RECOMBINANT
     Indication: FACTOR VIII DEFICIENCY
     Dosage: 150 IU/ 8 HOURLY
     Route: 042
     Dates: start: 20140713
  2. HELIXATE NEXGEN [Suspect]
     Active Substance: ANTIHEMOPHILIC FACTOR, HUMAN RECOMBINANT
     Indication: FACTOR VIII DEFICIENCY
     Dosage: 2000 IU/ 8 HOURLY
     Dates: start: 20140715
  3. HELIXATE NEXGEN [Suspect]
     Active Substance: ANTIHEMOPHILIC FACTOR, HUMAN RECOMBINANT
     Indication: FACTOR VIII DEFICIENCY
     Dosage: 250 IU, UNK
     Route: 042
     Dates: start: 20130917
  4. HELIXATE NEXGEN [Suspect]
     Active Substance: ANTIHEMOPHILIC FACTOR, HUMAN RECOMBINANT
     Indication: FACTOR VIII DEFICIENCY
     Dosage: 150 IU/ 8 HOURLY
     Route: 042
     Dates: start: 20140713
  5. HELIXATE NEXGEN [Suspect]
     Active Substance: ANTIHEMOPHILIC FACTOR, HUMAN RECOMBINANT
     Indication: HAEMORRHAGE PROPHYLAXIS
     Dosage: 250 IU, UNK
     Route: 042
     Dates: start: 20130828
  6. HELIXATE NEXGEN [Suspect]
     Active Substance: ANTIHEMOPHILIC FACTOR, HUMAN RECOMBINANT
     Indication: FACTOR VIII DEFICIENCY
     Dosage: 150 IU/8 HOURLY
     Route: 042
     Dates: start: 20140714
  7. HELIXATE NEXGEN [Suspect]
     Active Substance: ANTIHEMOPHILIC FACTOR, HUMAN RECOMBINANT
     Indication: FACTOR VIII DEFICIENCY
     Dosage: 150 IU/8 HOURLY
     Route: 042
     Dates: start: 20140714
  8. HELIXATE NEXGEN [Suspect]
     Active Substance: ANTIHEMOPHILIC FACTOR, HUMAN RECOMBINANT
     Indication: FACTOR VIII DEFICIENCY
     Dosage: 150 IU/8 HOURLY
     Route: 042
     Dates: start: 20140714
  9. HELIXATE NEXGEN [Suspect]
     Active Substance: ANTIHEMOPHILIC FACTOR, HUMAN RECOMBINANT
     Indication: FACTOR VIII DEFICIENCY
     Dosage: 2000 IU/ 8 HOURLY
     Dates: start: 20140715
  10. HELIXATE NEXGEN [Suspect]
     Active Substance: ANTIHEMOPHILIC FACTOR, HUMAN RECOMBINANT
     Indication: FACTOR VIII DEFICIENCY
     Dosage: 150 IU/ KG/ TID
     Route: 042
     Dates: start: 20130729
  11. HELIXATE NEXGEN [Suspect]
     Active Substance: ANTIHEMOPHILIC FACTOR, HUMAN RECOMBINANT
     Indication: FACTOR VIII DEFICIENCY
     Dosage: 2000 IU/ 8 HOURLY
     Dates: start: 20140715

REACTIONS (5)
  - Haemorrhagic diathesis [Unknown]
  - Drug ineffective [Not Recovered/Not Resolved]
  - Anti factor VIII antibody positive [Not Recovered/Not Resolved]
  - Contusion [Unknown]
  - Drug ineffective [Not Recovered/Not Resolved]

NARRATIVE: CASE EVENT DATE: 20130917
